FAERS Safety Report 4646986-1 (Version None)
Quarter: 2005Q2

REPORT INFORMATION
  Report Type: 
  Country: None (occurrence: None)
  Receive Date: 20050427
  Receipt Date: 20050425
  Transmission Date: 20051028
  Serious: Yes (Life-Threatening, Disabling)
  Sender: FDA-Public Use
  Company Number: US-MERCK-0504USA04406

PATIENT
  Age: 74 Year
  Sex: Female

DRUGS (4)
  1. VIOXX [Suspect]
     Indication: SPONDYLITIS
     Route: 048
     Dates: start: 19990101, end: 20020101
  2. VIOXX [Suspect]
     Indication: SPINAL COLUMN STENOSIS
     Route: 048
     Dates: start: 19990101, end: 20020101
  3. VICODIN [Concomitant]
     Route: 065
  4. METHADONE HYDROCHLORIDE [Concomitant]
     Route: 065

REACTIONS (4)
  - ARTERIAL STENOSIS [None]
  - CARDIAC MURMUR [None]
  - DYSPNOEA [None]
  - PAIN IN EXTREMITY [None]
